FAERS Safety Report 5890527-8 (Version None)
Quarter: 2008Q3

REPORT INFORMATION
  Report Type: 
  Country: None (occurrence: None)
  Receive Date: 20080922
  Receipt Date: 20080917
  Transmission Date: 20090109
  Serious: Yes (Life-Threatening, Other)
  Sender: FDA-Public Use
  Company Number: CA-BAYER-200822352NA

PATIENT
  Age: 74 Year
  Sex: Male
  Weight: 54 kg

DRUGS (6)
  1. SORAFENIB [Suspect]
     Indication: NON-SMALL CELL LUNG CANCER STAGE IV
     Dosage: TOTAL DAILY DOSE: 400 MG  UNIT DOSE: 200 MG
     Route: 048
     Dates: start: 20080410, end: 20080506
  2. CYCLOSPORINE [Concomitant]
     Indication: PROPHYLAXIS AGAINST TRANSPLANT REJECTION
     Dates: start: 19890101
  3. PREDNISONE TAB [Concomitant]
  4. FLOMAX [Concomitant]
     Indication: URINARY RETENTION
     Dates: start: 20080307
  5. RANITIDINE [Concomitant]
     Indication: DYSPEPSIA
  6. TYLENOL (CAPLET) [Concomitant]
     Indication: PAIN

REACTIONS (1)
  - PULMONARY EMBOLISM [None]
